FAERS Safety Report 5131694-3 (Version None)
Quarter: 2006Q4

REPORT INFORMATION
  Report Type: 
  Country: None (occurrence: None)
  Receive Date: 20061013
  Receipt Date: 20061003
  Transmission Date: 20070319
  Serious: Yes (Hospitalization)
  Sender: FDA-Public Use
  Company Number: HQWYE872110OCT06

PATIENT
  Age: 6 Year
  Sex: Female

DRUGS (7)
  1. ADVIL [Suspect]
     Indication: PYREXIA
     Dosage: 7 TEASPOONS DAILY
     Route: 048
     Dates: start: 20060805
  2. ADVIL [Suspect]
     Indication: TONSILLITIS
     Dosage: 7 TEASPOONS DAILY
     Route: 048
     Dates: start: 20060805
  3. AMOXICILLIN [Suspect]
     Indication: PYREXIA
     Route: 048
     Dates: start: 20060805, end: 20060810
  4. AMOXICILLIN [Suspect]
     Indication: TONSILLITIS
     Route: 048
     Dates: start: 20060805, end: 20060810
  5. ACETAMINOPHEN [Concomitant]
  6. MAXILASE (AMYLASE) [Concomitant]
  7. VOGALENE (METOPIMAZINE) [Concomitant]

REACTIONS (7)
  - BLOOD SODIUM DECREASED [None]
  - HAEMOGLOBIN DECREASED [None]
  - PERITONEAL EFFUSION [None]
  - PLEURAL EFFUSION [None]
  - PULMONARY OEDEMA [None]
  - RENAL FAILURE ACUTE [None]
  - RENAL TUBULAR NECROSIS [None]
